FAERS Safety Report 18273587 (Version 1)
Quarter: 2020Q3

REPORT INFORMATION
  Report Type: Spontaneous
  Country: US (occurrence: US)
  Receive Date: 20200916
  Receipt Date: 20200916
  Transmission Date: 20201103
  Serious: Yes (Life-Threatening)
  Sender: FDA-Public Use
  Company Number: None

PATIENT

DRUGS (6)
  1. METOPROLOL TARTATE 25MG [Suspect]
     Active Substance: METOPROLOL TARTRATE
     Route: 048
  2. ATORVASTATIN 40MG [Suspect]
     Active Substance: ATORVASTATIN
     Route: 048
  3. PREMARIN [Suspect]
     Active Substance: ESTROGENS, CONJUGATED
  4. CLOPIDOGREL [Suspect]
     Active Substance: CLOPIDOGREL BISULFATE
     Indication: CARDIAC DISORDER
     Route: 048
     Dates: start: 20200130
  5. PANTOPRAZOLE SOD DR 40MG TAB [Suspect]
     Active Substance: PANTOPRAZOLE SODIUM
     Route: 048
  6. ASPIRIN 81MG [Suspect]
     Active Substance: ASPIRIN
     Route: 048

REACTIONS (2)
  - Transient ischaemic attack [None]
  - Cerebrovascular accident [None]

NARRATIVE: CASE EVENT DATE: 20200131
